FAERS Safety Report 18847930 (Version 1)
Quarter: 2021Q1

REPORT INFORMATION
  Report Type: Report from Study
  Country: US (occurrence: US)
  Receive Date: 20210204
  Receipt Date: 20210204
  Transmission Date: 20210419
  Serious: No
  Sender: FDA-Public Use
  Company Number: US-GLAXOSMITHKLINE-US2020227526

PATIENT
  Age: 86 Year
  Sex: Male

DRUGS (1)
  1. BELANTAMAB MAFODOTIN. [Suspect]
     Active Substance: BELANTAMAB MAFODOTIN
     Indication: PRODUCT USED FOR UNKNOWN INDICATION
     Dosage: 200 MG, Z (ONCE EVERY THREE WEEKS)
     Route: 042
     Dates: start: 20201006

REACTIONS (7)
  - Photophobia [Unknown]
  - Keratopathy [Recovering/Resolving]
  - Night blindness [Unknown]
  - Dry eye [Unknown]
  - Keratitis [Unknown]
  - Eye irritation [Unknown]
  - Visual acuity reduced [Recovering/Resolving]

NARRATIVE: CASE EVENT DATE: 20201229
